FAERS Safety Report 13366615 (Version 2)
Quarter: 2017Q2

REPORT INFORMATION
  Report Type: Spontaneous
  Country: DE (occurrence: DE)
  Receive Date: 20170323
  Receipt Date: 20170506
  Transmission Date: 20170830
  Serious: Yes (Death, Hospitalization, Other)
  Sender: FDA-Public Use
  Company Number: DE-ABBVIE-17P-062-1910872-00

PATIENT
  Age: 74 Year
  Sex: Female

DRUGS (7)
  1. ASPIRIN. [Concomitant]
     Active Substance: ASPIRIN
     Indication: CAROTID ARTERY STENOSIS
     Route: 048
  2. ALLOPURINOL. [Concomitant]
     Active Substance: ALLOPURINOL
     Indication: HYPERURICAEMIA
     Route: 048
  3. RAMIPRIL. [Concomitant]
     Active Substance: RAMIPRIL
     Indication: HYPERTENSION
     Route: 048
  4. VALSARTAN. [Concomitant]
     Active Substance: VALSARTAN
     Indication: PRODUCT USED FOR UNKNOWN INDICATION
     Route: 048
  5. HUMIRA [Suspect]
     Active Substance: ADALIMUMAB
     Indication: RHEUMATOID ARTHRITIS
     Route: 058
  6. TORASEMID [Concomitant]
     Active Substance: TORSEMIDE
     Indication: HYPERTENSION
     Route: 048
  7. CARVEDILOL. [Concomitant]
     Active Substance: CARVEDILOL
     Indication: HYPERTENSION
     Route: 048

REACTIONS (44)
  - Pulse absent [Unknown]
  - Lower gastrointestinal haemorrhage [Unknown]
  - Respiratory failure [Unknown]
  - Acute kidney injury [Fatal]
  - Tracheitis [Fatal]
  - Infectious pleural effusion [Fatal]
  - Tuberculosis [Unknown]
  - Corynebacterium infection [Unknown]
  - Disturbance in attention [Unknown]
  - Pulmonary necrosis [Fatal]
  - Procalcitonin decreased [Fatal]
  - Herpes simplex [Fatal]
  - Peripheral swelling [Unknown]
  - Bronchitis [Unknown]
  - Brain injury [Unknown]
  - Skin discolouration [Unknown]
  - Laryngeal inflammation [Fatal]
  - Ischaemia [Fatal]
  - Dermatitis herpetiformis [Recovered/Resolved]
  - Lower respiratory tract herpes infection [Fatal]
  - Pneumonia [Fatal]
  - Circulatory collapse [Fatal]
  - Systemic candida [Unknown]
  - Urinary tract infection [Unknown]
  - Aspiration [Fatal]
  - Pleural fibrosis [Fatal]
  - Sepsis [Fatal]
  - Pneumothorax [Unknown]
  - Myopathy [Unknown]
  - Microembolism [Unknown]
  - Coma [Fatal]
  - Necrosis [Fatal]
  - Arrhythmia [Unknown]
  - Herpes simplex meningoencephalitis [Unknown]
  - Intensive care unit acquired weakness [Unknown]
  - Muscle fatigue [Unknown]
  - Encephalopathy [Fatal]
  - Multiple organ dysfunction syndrome [Fatal]
  - Pharyngitis [Fatal]
  - Gangrene [Fatal]
  - Hyperuricaemia [Unknown]
  - Hypertension [Unknown]
  - Respiratory gas exchange disorder [Unknown]
  - Haemorrhoidal haemorrhage [Unknown]

NARRATIVE: CASE EVENT DATE: 2016
